FAERS Safety Report 10663210 (Version 1)
Quarter: 2014Q4

REPORT INFORMATION
  Report Type: Spontaneous
  Country: US (occurrence: US)
  Receive Date: 20141218
  Receipt Date: 20141218
  Transmission Date: 20150529
  Serious: No
  Sender: FDA-Public Use
  Company Number: US-GALDERMA-US14003198

PATIENT
  Age: 60 Year
  Sex: Female

DRUGS (9)
  1. MIRVASO [Suspect]
     Active Substance: BRIMONIDINE TARTRATE
     Indication: ROSACEA
     Dosage: 0.33%
     Route: 061
     Dates: start: 20140708, end: 20140815
  2. PREMARIN [Concomitant]
     Active Substance: ESTROGENS, CONJUGATED
     Indication: HORMONE REPLACEMENT THERAPY
  3. MIRVASO [Suspect]
     Active Substance: BRIMONIDINE TARTRATE
     Dosage: 0.33%
     Route: 061
     Dates: end: 201408
  4. SYNTHROID (LEVOTHYROXINE TABLETS, USP) [Concomitant]
     Indication: HYPOTHYROIDISM
     Dosage: 0.88
     Route: 048
     Dates: start: 2004
  5. UNSPECIFIED MAKEUP [Concomitant]
     Active Substance: UNSPECIFIED INGREDIENT
     Route: 061
  6. GLYTONE CLARIFYING MOISTURE CREAM [Concomitant]
     Dates: start: 2012
  7. PREMPRO [Concomitant]
     Active Substance: ESTROGENS, CONJUGATED\MEDROXYPROGESTERONE ACETATE
     Indication: HORMONE REPLACEMENT THERAPY
  8. MIRVASO [Suspect]
     Active Substance: BRIMONIDINE TARTRATE
     Dosage: 0.33%
     Route: 061
     Dates: start: 20140826, end: 20140826
  9. UNSPECIFIED SUNSCREEN [Concomitant]
     Route: 061

REACTIONS (7)
  - Condition aggravated [Recovered/Resolved]
  - Skin irritation [Recovered/Resolved]
  - Inappropriate schedule of drug administration [Recovered/Resolved]
  - Product use issue [Recovered/Resolved]
  - Erythema [Recovered/Resolved]
  - Rash erythematous [Recovered/Resolved]
  - Flushing [Recovered/Resolved]

NARRATIVE: CASE EVENT DATE: 201407
